FAERS Safety Report 5521682-7 (Version None)
Quarter: 2007Q4

REPORT INFORMATION
  Report Type: 
  Country: None (occurrence: None)
  Receive Date: 20071120
  Receipt Date: 20071109
  Transmission Date: 20080405
  Serious: Yes (Other)
  Sender: FDA-Public Use
  Company Number: PHHY2007BR00451

PATIENT
  Age: 71 Year
  Sex: Female

DRUGS (6)
  1. ZELMAC [Suspect]
     Indication: GASTROINTESTINAL DISORDER
     Dosage: 2 TABLETS/DAY
     Route: 048
     Dates: start: 20071010, end: 20071105
  2. ZELMAC [Suspect]
     Dosage: UNK, UNK
     Route: 048
  3. SYNTHROID [Concomitant]
     Indication: THYROID DISORDER
     Dosage: 50 MCG/DAY
     Route: 048
  4. GLIMEPIRIDE [Concomitant]
     Indication: DIABETES MELLITUS
     Dosage: 1.5 TABLET/DAY
     Route: 048
  5. NIFEDIPINE [Concomitant]
     Indication: HYPERTENSION
     Dosage: 2 TABLETS/DAY
     Route: 048
  6. LORAX [Concomitant]
     Indication: SLEEP DISORDER
     Dosage: 1 DF, QHS
     Route: 048

REACTIONS (10)
  - BLOOD PRESSURE INCREASED [None]
  - CRYING [None]
  - DEPRESSION [None]
  - DIARRHOEA [None]
  - DIZZINESS [None]
  - HEADACHE [None]
  - HYPERGLYCAEMIA [None]
  - HYPERHIDROSIS [None]
  - VISION BLURRED [None]
  - VOMITING [None]
